FAERS Safety Report 17516429 (Version 1)
Quarter: 2020Q1

REPORT INFORMATION
  Report Type: Spontaneous
  Country: US (occurrence: US)
  Receive Date: 20200309
  Receipt Date: 20200309
  Transmission Date: 20200409
  Serious: Yes (Other)
  Sender: FDA-Public Use
  Company Number: US-PFIZER INC-2020100102

PATIENT
  Age: 63 Year
  Sex: Female

DRUGS (4)
  1. LYRICA [Suspect]
     Active Substance: PREGABALIN
     Indication: FIBROMYALGIA
     Dosage: 230 MG, UNK
  2. LYRICA [Suspect]
     Active Substance: PREGABALIN
     Indication: NEURALGIA
     Dosage: 100 MG, UNK
  3. PROZAC [Concomitant]
     Active Substance: FLUOXETINE HYDROCHLORIDE
     Dosage: UNK
     Dates: start: 1989
  4. LYRICA [Suspect]
     Active Substance: PREGABALIN
     Indication: DEPRESSION
     Dosage: 175 MG, UNK (SHE WAS TAKING ONE100 MG AND  ONE 75 MG CAPSULE)

REACTIONS (5)
  - Drug dependence [Unknown]
  - Weight decreased [Unknown]
  - Euphoric mood [Unknown]
  - Colitis [Unknown]
  - Therapeutic response unexpected [Unknown]
